FAERS Safety Report 6242094-7 (Version None)
Quarter: 2009Q2

REPORT INFORMATION
  Report Type: 
  Country: None (occurrence: None)
  Receive Date: 20090623
  Receipt Date: 20090613
  Transmission Date: 20091009
  Serious: Yes (Other)
  Sender: FDA-Public Use
  Company Number: US-PFIZER INC-2009211975

PATIENT
  Sex: Male
  Weight: 85.488 kg

DRUGS (13)
  1. SUTENT [Suspect]
     Indication: RENAL CANCER METASTATIC
     Dosage: 37.5 MG, 1X/DAY
     Route: 048
     Dates: start: 20080718
  2. ACETYLSALICYLIC ACID [Concomitant]
     Dosage: 325 MG, 1X/DAY
  3. ATENOLOL [Concomitant]
     Dosage: 50 MG, 1X/DAY
  4. ENALAPRIL MALEATE [Concomitant]
     Dosage: 10 MG, UNK
  5. LASIX [Concomitant]
     Dosage: 40 MG, 1X/DAY
  6. ZETIA [Concomitant]
     Dosage: 10 MG, 1X/DAY
  7. LIPITOR [Concomitant]
     Dosage: 20 MG, 1X/DAY
  8. NITROGLYCERIN [Concomitant]
     Dosage: UNK
  9. AMBIEN [Concomitant]
     Dosage: UNK
  10. COMPAZINE [Concomitant]
     Dosage: UNK
  11. LOMOTIL [Concomitant]
     Dosage: UNK
  12. MEGACE [Concomitant]
     Dosage: UNK
  13. PROTONIX [Concomitant]
     Dosage: UNK

REACTIONS (4)
  - MUSCLE ATROPHY [None]
  - NERVE COMPRESSION [None]
  - NEUROPATHY PERIPHERAL [None]
  - SKIN DISCOLOURATION [None]
